FAERS Safety Report 8128829-7 (Version None)
Quarter: 2012Q1

REPORT INFORMATION
  Report Type: 
  Country: None (occurrence: None)
  Receive Date: 20120210
  Receipt Date: 20110322
  Transmission Date: 20120608
  Serious: No
  Sender: FDA-Public Use
  Company Number: US-BRISTOL-MYERS SQUIBB COMPANY-15624349

PATIENT
  Age: 77 Year
  Sex: Female

DRUGS (4)
  1. ZYRTEC [Concomitant]
  2. ORENCIA [Suspect]
     Dosage: HAD 5 INFUSIONS
  3. FOLIC ACID [Concomitant]
  4. TRAMADOL HCL [Concomitant]

REACTIONS (1)
  - DRUG INEFFECTIVE [None]
